FAERS Safety Report 7732411-0 (Version None)
Quarter: 2011Q3

REPORT INFORMATION
  Report Type: 
  Country: None (occurrence: None)
  Receive Date: 20110906
  Receipt Date: 20110824
  Transmission Date: 20111222
  Serious: Yes (Other)
  Sender: FDA-Public Use
  Company Number: US-US-EMD SERONO, INC.-7079113

PATIENT
  Sex: Male

DRUGS (4)
  1. REBIF [Suspect]
     Indication: PRODUCT USED FOR UNKNOWN INDICATION
     Route: 058
     Dates: start: 20100719
  2. MOTRIN [Suspect]
  3. NAPROXEN (ALEVE) [Concomitant]
     Indication: PREMEDICATION
  4. BACTRIM DS [Concomitant]

REACTIONS (8)
  - MUSCLE SPASMS [None]
  - HYPERTENSION [None]
  - BLOOD POTASSIUM DECREASED [None]
  - INJECTION SITE SWELLING [None]
  - PYREXIA [None]
  - INJECTION SITE INDURATION [None]
  - INJECTION SITE PAIN [None]
  - INJECTION SITE DISCOLOURATION [None]
